FAERS Safety Report 7457636-3 (Version None)
Quarter: 2011Q2

REPORT INFORMATION
  Report Type: 
  Country: None (occurrence: None)
  Receive Date: 20110504
  Receipt Date: 20110426
  Transmission Date: 20111010
  Serious: Yes (Hospitalization, Other)
  Sender: FDA-Public Use
  Company Number: US-ROCHE-541240

PATIENT
  Sex: Male
  Weight: 68 kg

DRUGS (1)
  1. ACCUTANE [Suspect]
     Route: 048
     Dates: start: 19991215, end: 20000112

REACTIONS (19)
  - RECTAL HAEMORRHAGE [None]
  - IRRITABILITY [None]
  - INSOMNIA [None]
  - INFLAMMATORY BOWEL DISEASE [None]
  - EMOTIONAL DISTRESS [None]
  - RHEUMATOID ARTHRITIS [None]
  - ABSCESS INTESTINAL [None]
  - SUICIDAL IDEATION [None]
  - GASTROINTESTINAL HAEMORRHAGE [None]
  - CROHN'S DISEASE [None]
  - ANXIETY [None]
  - IRON DEFICIENCY ANAEMIA [None]
  - RECTAL FISSURE [None]
  - WEIGHT DECREASED [None]
  - ABDOMINAL ABSCESS [None]
  - DEPRESSION [None]
  - ANAEMIA OF CHRONIC DISEASE [None]
  - APPENDICITIS PERFORATED [None]
  - DECREASED APPETITE [None]
